FAERS Safety Report 18655501 (Version 1)
Quarter: 2020Q4

REPORT INFORMATION
  Report Type: Spontaneous
  Country: SI (occurrence: SI)
  Receive Date: 20201223
  Receipt Date: 20201223
  Transmission Date: 20210114
  Serious: Yes (Other)
  Sender: FDA-Public Use
  Company Number: NVSC2020SI335950

PATIENT
  Age: 53 Year
  Sex: Male

DRUGS (11)
  1. APAURIN [Concomitant]
     Active Substance: DIAZEPAM
     Indication: PRODUCT USED FOR UNKNOWN INDICATION
     Route: 065
  2. OCRELIZUMAB. [Concomitant]
     Active Substance: OCRELIZUMAB
     Indication: PRODUCT USED FOR UNKNOWN INDICATION
     Dosage: UNK
     Route: 065
     Dates: start: 201905
  3. FAMPYRA [Concomitant]
     Active Substance: DALFAMPRIDINE
     Indication: PRODUCT USED FOR UNKNOWN INDICATION
     Dosage: UNK
     Route: 065
     Dates: start: 2015
  4. TYSABRI [Concomitant]
     Active Substance: NATALIZUMAB
     Indication: PRODUCT USED FOR UNKNOWN INDICATION
     Dosage: UNK
     Route: 065
     Dates: start: 201710
  5. GLATIRAMER ACETATE. [Concomitant]
     Active Substance: GLATIRAMER ACETATE
     Indication: PRODUCT USED FOR UNKNOWN INDICATION
     Dosage: UNK
     Route: 065
     Dates: start: 201807
  6. GILENYA [Suspect]
     Active Substance: FINGOLIMOD HYDROCHLORIDE
     Indication: PRODUCT USED FOR UNKNOWN INDICATION
     Dosage: UNK
     Route: 065
     Dates: start: 201406, end: 2017
  7. SOLU-MEDROL [Concomitant]
     Active Substance: METHYLPREDNISOLONE SODIUM SUCCINATE
     Indication: PRODUCT USED FOR UNKNOWN INDICATION
     Route: 065
  8. ENTECAVIR. [Concomitant]
     Active Substance: ENTECAVIR
     Indication: PRODUCT USED FOR UNKNOWN INDICATION
     Dosage: 0.5 MG, QD
     Route: 065
  9. OCRELIZUMAB. [Concomitant]
     Active Substance: OCRELIZUMAB
     Dosage: UNK
     Route: 065
     Dates: start: 201906
  10. OCRELIZUMAB. [Concomitant]
     Active Substance: OCRELIZUMAB
     Dosage: UNK
     Route: 065
     Dates: start: 201907
  11. OCRELIZUMAB. [Concomitant]
     Active Substance: OCRELIZUMAB
     Dosage: UNK
     Route: 065
     Dates: start: 202007

REACTIONS (19)
  - Anger [Unknown]
  - Fatigue [Unknown]
  - Expanded disability status scale score increased [Unknown]
  - Multiple sclerosis relapse [Unknown]
  - Gait disturbance [Unknown]
  - Diarrhoea [Unknown]
  - Cognitive disorder [Unknown]
  - Fall [Unknown]
  - Progressive multifocal leukoencephalopathy [Unknown]
  - Rash pruritic [Unknown]
  - Muscular weakness [Unknown]
  - Confusional state [Unknown]
  - Irritability [Unknown]
  - Atrophy [Unknown]
  - Vomiting [Unknown]
  - Hepatitis B [Unknown]
  - Eczema [Unknown]
  - Central nervous system lesion [Unknown]
  - Nervous system disorder [Unknown]

NARRATIVE: CASE EVENT DATE: 201510
